FAERS Safety Report 5522168-6 (Version None)
Quarter: 2007Q4

REPORT INFORMATION
  Report Type: 
  Country: None (occurrence: None)
  Receive Date: 20071115
  Receipt Date: 20071106
  Transmission Date: 20080405
  Serious: Yes (Other)
  Sender: FDA-Public Use
  Company Number: 2007AL004750

PATIENT
  Age: 37 Year
  Sex: Female

DRUGS (6)
  1. TRAMADOL HCL [Suspect]
     Indication: BACK PAIN
     Dosage: 200 MG; QD; PO
     Route: 048
     Dates: start: 20070914, end: 20070926
  2. OXYCODONE HCL [Concomitant]
  3. AMITRIPTLINE HCL [Concomitant]
  4. DIAZEPAM [Concomitant]
  5. GABAPENTIN [Concomitant]
  6. MELOXICAM [Concomitant]

REACTIONS (5)
  - AFFECT LABILITY [None]
  - AGITATION [None]
  - ANXIETY [None]
  - PARANOIA [None]
  - WITHDRAWAL SYNDROME [None]
